FAERS Safety Report 21833100 (Version 1)
Quarter: 2023Q1

REPORT INFORMATION
  Report Type: Spontaneous
  Country: US (occurrence: US)
  Receive Date: 20230106
  Receipt Date: 20230106
  Transmission Date: 20230417
  Serious: No
  Sender: FDA-Public Use
  Company Number: US-ALLERGAN-2241534US

PATIENT
  Sex: Female

DRUGS (2)
  1. QULIPTA [Suspect]
     Active Substance: ATOGEPANT
     Indication: Headache
  2. QULIPTA [Suspect]
     Active Substance: ATOGEPANT
     Indication: Migraine

REACTIONS (2)
  - Dizziness [Unknown]
  - Nausea [Unknown]
